FAERS Safety Report 7441033-0 (Version None)
Quarter: 2011Q2

REPORT INFORMATION
  Report Type: 
  Country: None (occurrence: None)
  Receive Date: 20110427
  Receipt Date: 20100302
  Transmission Date: 20111010
  Serious: Yes (Death, Other)
  Sender: FDA-Public Use
  Company Number: DE-GENENTECH-317497

PATIENT
  Age: 87 Year
  Sex: Male

DRUGS (1)
  1. LUCENTIS [Suspect]
     Indication: MACULAR DEGENERATION
     Dosage: UNK
     Route: 031
     Dates: start: 20090625

REACTIONS (6)
  - NERVE INJURY [None]
  - VISUAL IMPAIRMENT [None]
  - UPPER LIMB FRACTURE [None]
  - TONGUE PARALYSIS [None]
  - SPEECH DISORDER [None]
  - DEATH [None]
